FAERS Safety Report 8005510-6 (Version None)
Quarter: 2011Q4

REPORT INFORMATION
  Report Type: 
  Country: None (occurrence: None)
  Receive Date: 20111123
  Receipt Date: 20110913
  Transmission Date: 20120403
  Serious: No
  Sender: FDA-Public Use
  Company Number: 335853

PATIENT

DRUGS (1)
  1. VICTOZA [Suspect]
     Indication: TYPE 2 DIABETES MELLITUS
     Dosage: 0.06, SUBCUTANEOUS
     Route: 058
     Dates: start: 20110912

REACTIONS (2)
  - VOMITING [None]
  - DIARRHOEA [None]
